FAERS Safety Report 9435497 (Version 2)
Quarter: 2013Q3

REPORT INFORMATION
  Report Type: Spontaneous
  Country: JP (occurrence: None)
  Receive Date: 20130730
  Receipt Date: 20130816
  Transmission Date: 20140515
  Serious: Yes (Death)
  Sender: FDA-Public Use
  Company Number: TCI2013A04093

PATIENT
  Age: 70 Year
  Sex: Male

DRUGS (12)
  1. ACTOS [Suspect]
     Indication: DIABETES MELLITUS
     Dosage: 15 MG ( 15 MG, 1 IN 1 D) ORAL
     Route: 048
     Dates: end: 20100105
  2. PIOGLITAZONE HYDROCHLORIDE [Suspect]
     Indication: DIABETES MELLITUS
     Dosage: 15 MG ( 15 MG, 1 IN 1 D) ORAL
     Route: 048
     Dates: start: 20100106, end: 20130705
  3. BAYASPIRIN ( ACETYLSALICYLIC ACID) [Concomitant]
  4. ADALAT CR ( NIFEDIPINE) [Concomitant]
  5. KALIMATE ( CALCIUM POLYSTYRENE SUFONATE) [Concomitant]
  6. FLIVAS ( NAFTOPIDIL) [Concomitant]
  7. APIDRA ( INSULIN GLULISINE) [Concomitant]
  8. LANTUS (INSULIN GLARGINE) [Concomitant]
  9. LIPACREON ( PANCRELIPASE) [Concomitant]
  10. REZALTAS HD ( AZELNIDIPINE, OLMESARTAN MEDOXOMIL) [Concomitant]
  11. TENORMIN ( ATENOLOL) [Concomitant]
  12. ACINON ( NIZATIDINE) [Concomitant]

REACTIONS (4)
  - Bladder neoplasm [None]
  - Gastric ulcer [None]
  - Haematemesis [None]
  - Shock haemorrhagic [None]
